FAERS Safety Report 25906019 (Version 1)
Quarter: 2025Q4

REPORT INFORMATION
  Report Type: Spontaneous
  Country: US (occurrence: US)
  Receive Date: 20251010
  Receipt Date: 20251010
  Transmission Date: 20260117
  Serious: No
  Sender: COSETTE PHARMACEUTICALS INC
  Company Number: US-COSETTE-CP2025US000973

PATIENT
  Sex: Male

DRUGS (6)
  1. NYSTATIN [Suspect]
     Active Substance: NYSTATIN
     Indication: Dermatitis diaper
     Route: 065
  2. DESTIN [Concomitant]
     Indication: Dermatitis diaper
     Route: 065
  3. PARAFFIN [Concomitant]
     Active Substance: PARAFFIN
     Indication: Dermatitis diaper
     Route: 065
  4. CLOTRIMAZOLE [Concomitant]
     Active Substance: CLOTRIMAZOLE
     Indication: Dermatitis diaper
     Route: 065
  5. A+D [Concomitant]
     Indication: Dermatitis diaper
     Route: 065
  6. AQUAPHOR [WHITE SOFT PARAFFIN] [Concomitant]
     Indication: Dermatitis diaper
     Route: 065

REACTIONS (1)
  - Drug ineffective [Unknown]
